FAERS Safety Report 5245913-6 (Version None)
Quarter: 2007Q1

REPORT INFORMATION
  Report Type: 
  Country: None (occurrence: None)
  Receive Date: 20070216
  Receipt Date: 20070209
  Transmission Date: 20070707
  Serious: Yes (Other)
  Sender: FDA-Public Use
  Company Number: 2007SP002101

PATIENT
  Age: 66 Year
  Sex: Male

DRUGS (10)
  1. TEMODAL [Suspect]
     Indication: ANAPLASTIC ASTROCYTOMA
     Dosage: 150 MG/M2;QD; PO, 150 MG/M2;QD;PO, 150 MG/M2;QD;PO
     Route: 048
     Dates: start: 20061027, end: 20061031
  2. TEMODAL [Suspect]
     Indication: NEOPLASM RECURRENCE
     Dosage: 150 MG/M2;QD; PO, 150 MG/M2;QD;PO, 150 MG/M2;QD;PO
     Route: 048
     Dates: start: 20061027, end: 20061031
  3. TEMODAL [Suspect]
     Indication: ANAPLASTIC ASTROCYTOMA
     Dosage: 150 MG/M2;QD; PO, 150 MG/M2;QD;PO, 150 MG/M2;QD;PO
     Route: 048
     Dates: start: 20061222, end: 20061226
  4. TEMODAL [Suspect]
     Indication: NEOPLASM RECURRENCE
     Dosage: 150 MG/M2;QD; PO, 150 MG/M2;QD;PO, 150 MG/M2;QD;PO
     Route: 048
     Dates: start: 20061222, end: 20061226
  5. TEMODAL [Suspect]
     Indication: ANAPLASTIC ASTROCYTOMA
     Dosage: 150 MG/M2;QD; PO, 150 MG/M2;QD;PO, 150 MG/M2;QD;PO
     Route: 048
     Dates: start: 20070118, end: 20070122
  6. TEMODAL [Suspect]
     Indication: NEOPLASM RECURRENCE
     Dosage: 150 MG/M2;QD; PO, 150 MG/M2;QD;PO, 150 MG/M2;QD;PO
     Route: 048
     Dates: start: 20070118, end: 20070122
  7. RADIOTHERAPY [Concomitant]
  8. NATULAN [Concomitant]
  9. CYMERIN [Concomitant]
  10. ONCOVIN [Concomitant]

REACTIONS (1)
  - TUMOUR HAEMORRHAGE [None]
